FAERS Safety Report 5155414-1 (Version None)
Quarter: 2006Q4

REPORT INFORMATION
  Report Type: 
  Country: None (occurrence: None)
  Receive Date: 20061121
  Receipt Date: 20061109
  Transmission Date: 20070319
  Serious: Yes (Death)
  Sender: FDA-Public Use
  Company Number: DE-PURDUE-DEU_2006_0002645

PATIENT
  Age: 75 Year
  Sex: Female

DRUGS (3)
  1. TARGIN 10/5 MG RETARDTABLETTEN [Suspect]
     Indication: PAIN
     Dosage: 10 MG, BID
     Route: 048
     Dates: end: 20061030
  2. ANALGESICS [Concomitant]
  3. CORTISONE ACETATE [Concomitant]

REACTIONS (3)
  - CONFUSIONAL STATE [None]
  - DEATH [None]
  - SOMNOLENCE [None]
